FAERS Safety Report 4623105-9 (Version None)
Quarter: 2005Q1

REPORT INFORMATION
  Report Type: 
  Country: None (occurrence: None)
  Receive Date: 20050328
  Receipt Date: 20050328
  Transmission Date: 20050727
  Serious: Yes (Disabling)
  Sender: FDA-Public Use
  Company Number: None

PATIENT
  Sex: Female
  Weight: 52.1637 kg

DRUGS (2)
  1. EFFEXOR XR [Suspect]
     Indication: ANXIETY
     Dosage: 112.5MG  ONCE DAILY  ORAL
     Route: 048
     Dates: start: 20040505, end: 20050321
  2. EFFEXOR XR [Suspect]
     Indication: DEPRESSION
     Dosage: 112.5MG  ONCE DAILY  ORAL
     Route: 048
     Dates: start: 20040505, end: 20050321

REACTIONS (23)
  - ANXIETY [None]
  - BEDRIDDEN [None]
  - DRUG EFFECT DECREASED [None]
  - DYSPNOEA [None]
  - FEELING HOT AND COLD [None]
  - FEELING OF DESPAIR [None]
  - HEADACHE [None]
  - HEART RATE INCREASED [None]
  - HYPERHIDROSIS [None]
  - MALAISE [None]
  - MENTAL DISORDER [None]
  - MOBILITY DECREASED [None]
  - MOOD SWINGS [None]
  - MOTION SICKNESS [None]
  - MUSCLE TWITCHING [None]
  - NAUSEA [None]
  - NERVOUS SYSTEM DISORDER [None]
  - NIGHTMARE [None]
  - PARAESTHESIA [None]
  - PHOTOPHOBIA [None]
  - SINUS DISORDER [None]
  - TREMOR [None]
  - VOMITING [None]
